FAERS Safety Report 5777787-9 (Version None)
Quarter: 2008Q2

REPORT INFORMATION
  Report Type: 
  Country: None (occurrence: None)
  Receive Date: 20080618
  Receipt Date: 20080606
  Transmission Date: 20081010
  Serious: Yes (Other)
  Sender: FDA-Public Use
  Company Number: US-PFIZER INC-2008049229

PATIENT
  Sex: Female
  Weight: 90.7 kg

DRUGS (14)
  1. LYRICA [Suspect]
     Indication: FIBROMYALGIA
     Route: 048
  2. GEODON [Suspect]
     Indication: BIPOLAR DISORDER
     Route: 048
     Dates: start: 20080601, end: 20080601
  3. VALSARTAN [Concomitant]
     Route: 048
  4. INSULIN [Concomitant]
  5. PROTONIX [Concomitant]
     Route: 048
  6. VALTREX [Concomitant]
     Route: 048
  7. FUROSEMIDE [Concomitant]
     Route: 048
  8. VITAMIN CAP [Concomitant]
     Route: 048
  9. NAPROXEN [Concomitant]
     Route: 048
  10. PAXIL CR [Concomitant]
     Route: 048
  11. LORAZEPAM [Concomitant]
     Route: 048
  12. FISH OIL [Concomitant]
     Route: 048
  13. ALL OTHER THERAPEUTIC PRODUCTS [Concomitant]
     Route: 048
  14. VITACAL [Concomitant]
     Route: 048

REACTIONS (4)
  - BALANCE DISORDER [None]
  - CEREBROVASCULAR ACCIDENT [None]
  - MOBILITY DECREASED [None]
  - MUTISM [None]
